FAERS Safety Report 23847551 (Version 1)
Quarter: 2024Q2

REPORT INFORMATION
  Report Type: Spontaneous
  Country: ES (occurrence: ES)
  Receive Date: 20240513
  Receipt Date: 20240513
  Transmission Date: 20240716
  Serious: Yes (Other)
  Sender: FDA-Public Use
  Company Number: None

PATIENT
  Age: 93 Year
  Sex: Female

DRUGS (10)
  1. LINAGLIPTIN [Suspect]
     Active Substance: LINAGLIPTIN
     Indication: Type 2 diabetes mellitus
     Dosage: 1/12
     Dates: start: 20231201
  2. CLINDAMYCIN HYDROCHLORIDE [Suspect]
     Active Substance: CLINDAMYCIN HYDROCHLORIDE
     Indication: Wound infection
     Route: 048
     Dates: start: 20240126, end: 20240131
  3. Losart?n/Hidroclorotiazida 100 mg/25 mg 28 comprimidos [Concomitant]
     Indication: Product used for unknown indication
     Dates: start: 20180614
  4. Carvedilol 6,25 mg 28 comprimidos [Concomitant]
     Indication: Product used for unknown indication
     Dates: start: 20191211
  5. Empagliflozina/Metformina 12,5 mg/1.000 mg 60 comprimidos [Concomitant]
     Indication: Type 2 diabetes mellitus
     Dates: start: 20191219
  6. ?cido acetilsalic?lico 300 mg 30 comprimidos [Concomitant]
     Indication: Product used for unknown indication
     Dates: start: 20191107
  7. Lercanidipino 20 mg 28 comprimidos [Concomitant]
     Indication: Product used for unknown indication
     Dates: start: 20181026
  8. Atorvastatina/Ezetimiba 20 mg/10 mg 30 comprimidos [Concomitant]
     Indication: Product used for unknown indication
  9. SOMAZINA 100 mg/ml SOLUCION ORAL [Concomitant]
     Indication: Product used for unknown indication
     Dates: start: 20211203
  10. Omeprazol 20 mg 56 c?psulas [Concomitant]
     Indication: Product used for unknown indication

REACTIONS (1)
  - Pemphigus [Recovering/Resolving]

NARRATIVE: CASE EVENT DATE: 20240131
